FAERS Safety Report 24898667 (Version 1)
Quarter: 2025Q1

REPORT INFORMATION
  Report Type: Report from Study
  Country: IN (occurrence: IN)
  Receive Date: 20250129
  Receipt Date: 20250129
  Transmission Date: 20250409
  Serious: Yes (Other)
  Sender: ROCHE
  Company Number: IN-ROCHE-10000021631

PATIENT
  Age: 37 Year
  Sex: Female

DRUGS (2)
  1. PERJETA [Suspect]
     Active Substance: PERTUZUMAB
     Indication: Breast cancer
     Route: 040
     Dates: start: 20240615
  2. PERJETA [Suspect]
     Active Substance: PERTUZUMAB
     Route: 040

REACTIONS (3)
  - Off label use [Unknown]
  - Breast neoplasm [Unknown]
  - Neoplasm [Unknown]
